FAERS Safety Report 5076535-8 (Version None)
Quarter: 2006Q3

REPORT INFORMATION
  Report Type: 
  Country: None (occurrence: None)
  Receive Date: 20060810
  Receipt Date: 20060707
  Transmission Date: 20061208
  Serious: Yes (Other)
  Sender: FDA-Public Use
  Company Number: DEWYE050307JUL06

PATIENT
  Sex: Female
  Weight: 84 kg

DRUGS (4)
  1. ENBREL [Suspect]
     Indication: RHEUMATOID ARTHRITIS
     Route: 058
     Dates: start: 20060516, end: 20060704
  2. EUTHYROX [Concomitant]
     Indication: HYPERTHYROIDISM
     Dosage: 100 ?G 6 TIMES PER WEEK
     Route: 048
  3. PREDNISOLONE [Concomitant]
     Indication: RHEUMATOID ARTHRITIS
     Dosage: 20MG (FREQUENCY UNKNOWN)
     Dates: end: 20060516
  4. PREDNISOLONE [Concomitant]
     Dosage: 7.5MG PER DAY
     Route: 048
     Dates: start: 20060516

REACTIONS (3)
  - ALANINE AMINOTRANSFERASE INCREASED [None]
  - BLOOD ALKALINE PHOSPHATASE INCREASED [None]
  - GAMMA-GLUTAMYLTRANSFERASE INCREASED [None]
